FAERS Safety Report 8101617-3 (Version None)
Quarter: 2012Q1

REPORT INFORMATION
  Report Type: 
  Country: None (occurrence: None)
  Receive Date: 20120129
  Receipt Date: 20111012
  Transmission Date: 20120608
  Serious: No
  Sender: FDA-Public Use
  Company Number: US-ABBOTT-11P-163-0863257-00

PATIENT
  Sex: Male

DRUGS (2)
  1. HUMIRA [Suspect]
     Indication: PSORIATIC ARTHROPATHY
     Route: 058
     Dates: start: 20110701
  2. HUMIRA [Suspect]
     Indication: PSORIASIS

REACTIONS (3)
  - MOBILITY DECREASED [None]
  - SKIN HYPERTROPHY [None]
  - DRY SKIN [None]
